FAERS Safety Report 19443348 (Version 1)
Quarter: 2021Q2

REPORT INFORMATION
  Report Type: Spontaneous
  Country: US (occurrence: US)
  Receive Date: 20210621
  Receipt Date: 20210621
  Transmission Date: 20210717
  Serious: No
  Sender: FDA-Public Use
  Company Number: US-ELI_LILLY_AND_COMPANY-US202106006941

PATIENT
  Sex: Male

DRUGS (3)
  1. ENZALUTAMIDE ASTELLAS [Suspect]
     Active Substance: ENZALUTAMIDE
     Dosage: 80 MG, DAILY (DOSE DECREASED)
     Route: 048
     Dates: start: 20190802
  2. TRULICITY [Suspect]
     Active Substance: DULAGLUTIDE
     Indication: PRODUCT USED FOR UNKNOWN INDICATION
     Dosage: UNK UNK, UNKNOWN
     Route: 065
  3. ENZALUTAMIDE ASTELLAS [Suspect]
     Active Substance: ENZALUTAMIDE
     Indication: PROSTATE CANCER
     Dosage: 160 MG, DAILY
     Route: 048
     Dates: start: 20190411

REACTIONS (4)
  - Candida infection [Recovered/Resolved]
  - Gastrointestinal disorder [Unknown]
  - Abdominal discomfort [Unknown]
  - Dyspepsia [Unknown]
